FAERS Safety Report 8590453 (Version 8)
Quarter: 2019Q1

REPORT INFORMATION
  Report Type: Spontaneous
  Country: US (occurrence: US)
  Receive Date: 20120601
  Receipt Date: 20190123
  Transmission Date: 20190418
  Serious: Yes (Death, Hospitalization, Other)
  Sender: FDA-Public Use
  Company Number: US-ASTRAZENECA-2012SE34393

PATIENT
  Age: 830 Month
  Sex: Female
  Weight: 117.9 kg

DRUGS (19)
  1. CALCIUM [Concomitant]
     Active Substance: CALCIUM
     Dosage: 650.0MG UNKNOWN
     Dates: start: 20090908
  2. LOPRESSOR [Concomitant]
     Active Substance: METOPROLOL TARTRATE
     Dosage: 50.0MG UNKNOWN
     Dates: start: 20100604
  3. ZETIA [Concomitant]
     Active Substance: EZETIMIBE
     Dosage: 10.0MG UNKNOWN
     Dates: start: 20100604
  4. FERROUS SULFATE. [Concomitant]
     Active Substance: FERROUS SULFATE
     Dosage: 325.0MG UNKNOWN
     Dates: start: 20100604
  5. AVALIDE [Concomitant]
     Active Substance: HYDROCHLOROTHIAZIDE\IRBESARTAN
     Dosage: 150-12.5 TO 300-12.5 MG
     Dates: start: 20060126
  6. ZOCOR [Concomitant]
     Active Substance: SIMVASTATIN
     Dosage: 40.0MG UNKNOWN
     Dates: start: 20060126
  7. MILK OF MAGNESIA [Concomitant]
     Active Substance: MAGNESIUM HYDROXIDE
     Dates: start: 2011
  8. CIPRO [Concomitant]
     Active Substance: CIPROFLOXACIN HYDROCHLORIDE
     Dosage: 500.0MG UNKNOWN
     Dates: start: 20100114
  9. NEXIUM [Suspect]
     Active Substance: ESOMEPRAZOLE MAGNESIUM
     Indication: GASTROOESOPHAGEAL REFLUX DISEASE
     Dosage: 40 MG, ONE OR TWICE DAILY
     Route: 048
     Dates: end: 2010
  10. NEXIUM [Suspect]
     Active Substance: ESOMEPRAZOLE MAGNESIUM
     Indication: GASTROOESOPHAGEAL REFLUX DISEASE
     Route: 048
     Dates: start: 200504, end: 201201
  11. FLAGYL [Concomitant]
     Active Substance: METRONIDAZOLE\METRONIDAZOLE HYDROCHLORIDE
     Dosage: 500.0MG UNKNOWN
     Dates: start: 20100604
  12. ULTRAM [Concomitant]
     Active Substance: TRAMADOL HYDROCHLORIDE
     Dosage: 50.0MG UNKNOWN
     Dates: start: 20110803
  13. TOPROL XL [Concomitant]
     Active Substance: METOPROLOL SUCCINATE
     Dosage: 100.0MG UNKNOWN
     Dates: start: 20110309
  14. SYNTHROID [Concomitant]
     Active Substance: LEVOTHYROXINE SODIUM
     Dosage: 137.0UG UNKNOWN
     Dates: start: 20110124
  15. NEXIUM [Suspect]
     Active Substance: ESOMEPRAZOLE MAGNESIUM
     Indication: GASTROOESOPHAGEAL REFLUX DISEASE
     Route: 048
     Dates: start: 20060130
  16. NEXIUM [Suspect]
     Active Substance: ESOMEPRAZOLE MAGNESIUM
     Indication: GASTROOESOPHAGEAL REFLUX DISEASE
     Dosage: 40.0MG UNKNOWN
     Route: 048
     Dates: start: 20110411
  17. TOPROL XL [Concomitant]
     Active Substance: METOPROLOL SUCCINATE
     Dosage: 100.0MG UNKNOWN
     Dates: start: 20060119
  18. PRAVACHOL [Concomitant]
     Active Substance: PRAVASTATIN SODIUM
     Dosage: 40.0MG UNKNOWN
     Dates: start: 20100604
  19. FOLIC ACID. [Concomitant]
     Active Substance: FOLIC ACID
     Dosage: 1.0MG UNKNOWN
     Dates: start: 20110125

REACTIONS (23)
  - Renal failure [Fatal]
  - Osteoarthritis [Unknown]
  - Back injury [Unknown]
  - Osteopenia [Unknown]
  - Osteoporosis [Unknown]
  - Fall [Unknown]
  - Bone disorder [Unknown]
  - Cerebrovascular accident [Unknown]
  - Rib fracture [Unknown]
  - Limb injury [Unknown]
  - Chronic kidney disease [Unknown]
  - Upper limb fracture [Unknown]
  - Intervertebral disc degeneration [Unknown]
  - Foot fracture [Unknown]
  - Arthritis [Unknown]
  - Cataract [Unknown]
  - Cardiovascular disorder [Unknown]
  - Neoplasm malignant [Unknown]
  - Spinal compression fracture [Unknown]
  - Hypothyroidism [Unknown]
  - Rheumatoid arthritis [Unknown]
  - Body height decreased [Unknown]
  - Traumatic arthropathy [Unknown]

NARRATIVE: CASE EVENT DATE: 200509
